FAERS Safety Report 7312608-4 (Version None)
Quarter: 2011Q1

REPORT INFORMATION
  Report Type: 
  Country: None (occurrence: None)
  Receive Date: 20110224
  Receipt Date: 20100520
  Transmission Date: 20110831
  Serious: No
  Sender: FDA-Public Use
  Company Number: US-MYLANLABS-2010S1008996

PATIENT
  Age: 51 Year
  Sex: Female
  Weight: 60.33 kg

DRUGS (3)
  1. ATENOLOL [Suspect]
     Indication: PALPITATIONS
     Route: 048
     Dates: start: 20100401
  2. PROTONIX [Concomitant]
     Indication: GASTROOESOPHAGEAL REFLUX DISEASE
     Dates: start: 20080101
  3. PREMPRO [Concomitant]
     Indication: HORMONE REPLACEMENT THERAPY
     Dates: start: 20080101

REACTIONS (1)
  - DYSPEPSIA [None]
